FAERS Safety Report 6200782-2 (Version None)
Quarter: 2009Q2

REPORT INFORMATION
  Report Type: 
  Country: None (occurrence: None)
  Receive Date: 20090522
  Receipt Date: 20080821
  Transmission Date: 20091009
  Serious: No
  Sender: FDA-Public Use
  Company Number: US-ALEXION-A200800141

PATIENT
  Sex: Female

DRUGS (18)
  1. SOLIRIS [Suspect]
     Indication: PAROXYSMAL NOCTURNAL HAEMOGLOBINURIA
     Dosage: 600 MG, SINGLE
     Route: 042
     Dates: start: 20080414, end: 20080414
  2. SOLIRIS [Suspect]
     Dosage: 600 MG, SINGLE
     Route: 042
     Dates: start: 20080421, end: 20080421
  3. SOLIRIS [Suspect]
     Dosage: 600 MG, SINGLE
     Route: 042
     Dates: start: 20080428, end: 20080428
  4. SOLIRIS [Suspect]
     Dosage: 600 MG, SINGLE
     Route: 042
     Dates: start: 20080505, end: 20080505
  5. SOLIRIS [Suspect]
     Dosage: 900 MG, SINGLE
     Route: 042
     Dates: start: 20080512, end: 20080512
  6. SOLIRIS [Suspect]
     Dosage: 900 MG, SINGLE
     Route: 042
     Dates: start: 20080526, end: 20080526
  7. SOLIRIS [Suspect]
     Dosage: 900 MG, SINGLE
     Route: 042
     Dates: start: 20080609, end: 20080609
  8. PREDNISONE [Concomitant]
  9. PREDNISONE [Concomitant]
     Dosage: 20 MG, QOD
  10. PREDNISONE [Concomitant]
     Dosage: 15 MG, QOD
     Dates: start: 20080512
  11. PREDNISONE [Concomitant]
     Dosage: 10 MG, QOD
     Dates: start: 20080609
  12. FOSAMAX [Concomitant]
  13. NITROSTAT [Concomitant]
     Dosage: UNK, PRN
  14. ULTRACET [Concomitant]
     Indication: FLANK PAIN
  15. ALAPHTAGEN [Concomitant]
     Indication: GLAUCOMA
     Route: 047
  16. HUMALOG [Concomitant]
     Indication: TYPE 2 DIABETES MELLITUS
     Dosage: SLIDING SCALE, QD/PRN
     Route: 051
  17. LANTUS [Concomitant]
     Indication: TYPE 2 DIABETES MELLITUS
     Dosage: SLIDING SCALE, PRN, HS
     Route: 051
  18. OXYGEN [Concomitant]
     Dosage: UNK, PRN
     Route: 045

REACTIONS (5)
  - ASTHENIA [None]
  - FATIGUE [None]
  - HAEMOGLOBIN DECREASED [None]
  - PROTEIN TOTAL INCREASED [None]
  - QUALITY OF LIFE DECREASED [None]
